FAERS Safety Report 8833780 (Version 1)
Quarter: 2012Q4

REPORT INFORMATION
  Report Type: Spontaneous
  Country: TR (occurrence: None)
  Receive Date: 20121005
  Receipt Date: 20121005
  Transmission Date: 20130627
  Serious: Yes (Hospitalization, Other)
  Sender: FDA-Public Use
  Company Number: 2012P1059895

PATIENT
  Age: 20 Year
  Sex: Female

DRUGS (1)
  1. NAPROXEN [Suspect]
     Indication: DYSMENORRHEA

REACTIONS (5)
  - Electrocardiogram ST segment elevation [None]
  - Kounis syndrome [None]
  - Urticaria [None]
  - Hypersensitivity [None]
  - Electrocardiogram ST segment depression [None]
